FAERS Safety Report 17456067 (Version 5)
Quarter: 2020Q2

REPORT INFORMATION
  Report Type: Report from Study
  Country: US (occurrence: US)
  Receive Date: 20200225
  Receipt Date: 20200512
  Transmission Date: 20200713
  Serious: Yes (Hospitalization)
  Sender: FDA-Public Use
  Company Number: NVSC2020US049383

PATIENT
  Sex: Male
  Weight: 81.18 kg

DRUGS (4)
  1. SILDENAFIL CITRATE. [Concomitant]
     Active Substance: SILDENAFIL CITRATE
     Indication: PRODUCT USED FOR UNKNOWN INDICATION
     Dosage: UNK
     Route: 065
  2. OPSUMIT [Concomitant]
     Active Substance: MACITENTAN
     Indication: PRODUCT USED FOR UNKNOWN INDICATION
     Dosage: UNK
     Route: 065
  3. TREPROSTINIL. [Suspect]
     Active Substance: TREPROSTINIL
     Indication: PULMONARY ARTERIAL HYPERTENSION
     Dosage: 1 DF, UNKNOWN  (70 NG/KG/MIN)
     Route: 042
     Dates: start: 20200219
  4. TREPROSTINIL. [Suspect]
     Active Substance: TREPROSTINIL
     Dosage: 1 DF, UNKNOWN  (66 NG/KG/MIN)
     Route: 042

REACTIONS (4)
  - Fatigue [Unknown]
  - Dyspnoea [Unknown]
  - Sluggishness [Unknown]
  - Lung disorder [Unknown]
